FAERS Safety Report 16459031 (Version 1)
Quarter: 2019Q2

REPORT INFORMATION
  Report Type: Spontaneous
  Country: US (occurrence: US)
  Receive Date: 20190620
  Receipt Date: 20190620
  Transmission Date: 20190711
  Serious: No
  Sender: FDA-Public Use
  Company Number: US-THERAPEUTICSMD-2019TMD01186

PATIENT
  Age: 55 Year
  Sex: Female
  Weight: 63.49 kg

DRUGS (7)
  1. BABY ASPIRIN [Concomitant]
     Active Substance: ASPIRIN
  2. IMVEXXY [Suspect]
     Active Substance: ESTRADIOL
     Indication: UTERINE ATROPHY
     Dosage: 10 ?G, 2X/WEEK BEFORE BED
     Route: 067
     Dates: start: 201904, end: 2019
  3. LEVOTHYROXINE. [Concomitant]
     Active Substance: LEVOTHYROXINE
     Dosage: UNK
  4. AUSTEDO [Concomitant]
     Active Substance: DEUTETRABENAZINE
  5. IMVEXXY [Suspect]
     Active Substance: ESTRADIOL
     Indication: ABDOMINAL DISCOMFORT
     Dosage: 10 ?G, 1X/DAY BEFORE BED
     Route: 067
     Dates: start: 2019, end: 201904
  6. XANAX [Concomitant]
     Active Substance: ALPRAZOLAM
     Dosage: 0.25 MG, 2X/DAY
  7. PREDNISONE. [Concomitant]
     Active Substance: PREDNISONE
     Dosage: UNK

REACTIONS (2)
  - White blood cell count increased [Unknown]
  - Dehydration [Unknown]

NARRATIVE: CASE EVENT DATE: 20190524
